FAERS Safety Report 7903747-5 (Version None)
Quarter: 2011Q4

REPORT INFORMATION
  Report Type: 
  Country: None (occurrence: None)
  Receive Date: 20111109
  Receipt Date: 20111104
  Transmission Date: 20120403
  Serious: Yes (Life-Threatening)
  Sender: FDA-Public Use
  Company Number: PHHY2011GB097439

PATIENT
  Sex: Male
  Weight: 6.21 kg

DRUGS (2)
  1. FLUOXETINE HCL [Suspect]
     Route: 064
  2. SERTRALINE HYDROCHLORIDE [Suspect]
     Route: 064

REACTIONS (2)
  - FOETAL EXPOSURE DURING PREGNANCY [None]
  - PERSISTENT FOETAL CIRCULATION [None]
